FAERS Safety Report 19401688 (Version 2)
Quarter: 2021Q2

REPORT INFORMATION
  Report Type: Spontaneous
  Country: US (occurrence: US)
  Receive Date: 20210611
  Receipt Date: 20210621
  Transmission Date: 20210717
  Serious: No
  Sender: FDA-Public Use
  Company Number: US-SA-2021SA173561

PATIENT
  Age: 74 Year
  Sex: Female

DRUGS (2)
  1. MULTAQ [Suspect]
     Active Substance: DRONEDARONE
     Indication: ATRIAL FIBRILLATION
     Dosage: 400 MG, BID
     Route: 065
     Dates: start: 202104
  2. MULTAQ [Suspect]
     Active Substance: DRONEDARONE
     Indication: HYPERTROPHIC CARDIOMYOPATHY
     Dosage: 400 MG, BID
     Dates: start: 20210501

REACTIONS (5)
  - Fatigue [Unknown]
  - Dizziness [Not Recovered/Not Resolved]
  - Heart rate irregular [Unknown]
  - Heart rate increased [Unknown]
  - Disorientation [Unknown]
